FAERS Safety Report 5418226-7 (Version None)
Quarter: 2007Q3

REPORT INFORMATION
  Report Type: 
  Country: None (occurrence: None)
  Receive Date: 20070817
  Receipt Date: 20070806
  Transmission Date: 20080115
  Serious: Yes (Hospitalization)
  Sender: FDA-Public Use
  Company Number: TR-ROCHE-510689

PATIENT
  Age: 29 Year
  Sex: Male
  Weight: 62 kg

DRUGS (6)
  1. DACLIZUMAB [Suspect]
     Route: 042
     Dates: start: 20040726, end: 20040922
  2. MYCOPHENOLATE MOFETIL [Suspect]
     Route: 048
     Dates: start: 20040726, end: 20070321
  3. MYCOPHENOLATE MOFETIL [Suspect]
     Route: 048
     Dates: start: 20070322
  4. SIROLIMUS [Suspect]
     Route: 048
     Dates: start: 20040726, end: 20070321
  5. SIROLIMUS [Suspect]
     Route: 048
     Dates: start: 20070322
  6. CORTICOSTEROID NOS [Suspect]
     Route: 065

REACTIONS (1)
  - PNEUMONIA [None]
